FAERS Safety Report 7320876-8 (Version None)
Quarter: 2011Q1

REPORT INFORMATION
  Report Type: 
  Country: None (occurrence: None)
  Receive Date: 20110228
  Receipt Date: 20110222
  Transmission Date: 20110831
  Serious: Yes (Other)
  Sender: FDA-Public Use
  Company Number: US-MERCK-1101USA02698

PATIENT
  Age: 60 Year
  Sex: Female
  Weight: 49 kg

DRUGS (8)
  1. IVEMEND [Suspect]
     Route: 041
     Dates: start: 20110214, end: 20110214
  2. IVEMEND [Suspect]
     Route: 041
     Dates: start: 20110214, end: 20110214
  3. IVEMEND [Suspect]
     Indication: PROPHYLAXIS OF NAUSEA AND VOMITING
     Route: 041
     Dates: start: 20110117, end: 20110117
  4. ZANTAC [Concomitant]
     Indication: PREMEDICATION
     Route: 042
     Dates: start: 20110117, end: 20110117
  5. ALOXI [Concomitant]
     Indication: PREMEDICATION
     Route: 042
     Dates: start: 20110117, end: 20110117
  6. DEXAMETHASONE [Concomitant]
     Indication: PREMEDICATION
     Route: 042
     Dates: start: 20110117, end: 20110117
  7. BENADRYL [Concomitant]
     Indication: PREMEDICATION
     Route: 042
     Dates: start: 20110117, end: 20110117
  8. IVEMEND [Suspect]
     Route: 041
     Dates: start: 20110117, end: 20110117

REACTIONS (3)
  - DYSPNOEA [None]
  - FEELING HOT [None]
  - FLUSHING [None]
